FAERS Safety Report 17254576 (Version 1)
Quarter: 2020Q1

REPORT INFORMATION
  Report Type: Spontaneous
  Country: US (occurrence: US)
  Receive Date: 20200109
  Receipt Date: 20200109
  Transmission Date: 20200409
  Serious: Yes (Other)
  Sender: FDA-Public Use
  Company Number: US-ALLERGAN-1953634US

PATIENT
  Sex: Female

DRUGS (2)
  1. DALVANCE [Suspect]
     Active Substance: DALBAVANCIN
     Indication: SKIN ULCER
     Dosage: 1500 MG, SINGLE
     Route: 042
     Dates: start: 20191220, end: 20191220
  2. ASPIRIN. [Concomitant]
     Active Substance: ASPIRIN
     Dosage: 325 MG

REACTIONS (12)
  - Pain in extremity [Not Recovered/Not Resolved]
  - Fine motor skill dysfunction [Unknown]
  - Sensation of blood flow [Unknown]
  - Flushing [Unknown]
  - Thrombosis [Unknown]
  - Infusion site thrombosis [Unknown]
  - Joint range of motion decreased [Not Recovered/Not Resolved]
  - Supraventricular tachycardia [Not Recovered/Not Resolved]
  - Limb deformity [Unknown]
  - Infusion related reaction [Unknown]
  - Loss of personal independence in daily activities [Unknown]
  - Erythema [Unknown]

NARRATIVE: CASE EVENT DATE: 201912
